FAERS Safety Report 6265746-1 (Version None)
Quarter: 2009Q3

REPORT INFORMATION
  Report Type: 
  Country: None (occurrence: None)
  Receive Date: 20090709
  Receipt Date: 20090709
  Transmission Date: 20100115
  Serious: Yes (Other)
  Sender: FDA-Public Use
  Company Number: None

PATIENT
  Age: 53 Year
  Sex: Female
  Weight: 54.5 kg

DRUGS (4)
  1. TOPIRAMATE [Suspect]
     Indication: MIGRAINE PROPHYLAXIS
     Dosage: 100 MG AT BEDTIME ORAL
     Route: 048
     Dates: start: 20090530, end: 20090621
  2. CYMBALTA [Concomitant]
  3. LEVOTHYROXINE SODIUM [Concomitant]
  4. TREXAMET [Concomitant]

REACTIONS (11)
  - FATIGUE [None]
  - FEELING ABNORMAL [None]
  - HYPOPHAGIA [None]
  - IMPAIRED DRIVING ABILITY [None]
  - IMPAIRED WORK ABILITY [None]
  - LETHARGY [None]
  - MALAISE [None]
  - POOR QUALITY SLEEP [None]
  - PRODUCT SUBSTITUTION ISSUE [None]
  - SOMNOLENCE [None]
  - SPEECH DISORDER [None]
